FAERS Safety Report 6466536-7 (Version None)
Quarter: 2009Q4

REPORT INFORMATION
  Report Type: 
  Country: None (occurrence: None)
  Receive Date: 20091202
  Receipt Date: 20091124
  Transmission Date: 20100525
  Serious: Yes (Hospitalization)
  Sender: FDA-Public Use
  Company Number: KR-ASTRAZENECA-2009SE29038

PATIENT
  Age: 31 Year
  Sex: Female

DRUGS (2)
  1. PROPOFOL [Suspect]
     Indication: ANAESTHESIA
     Dosage: PREVIOUSLY ADMINISTERED FOR  IN VITRO FERTILIZATION   PROCEDURE
  2. PROPOFOL [Suspect]

REACTIONS (3)
  - MYOCLONIC EPILEPSY [None]
  - OPISTHOTONUS [None]
  - STUPOR [None]
